FAERS Safety Report 7597969-3 (Version None)
Quarter: 2011Q3

REPORT INFORMATION
  Report Type: 
  Country: None (occurrence: None)
  Receive Date: 20110708
  Receipt Date: 20110630
  Transmission Date: 20111222
  Serious: Yes (Other)
  Sender: FDA-Public Use
  Company Number: PHHY2011GB57904

PATIENT
  Age: 52 Year
  Sex: Male
  Weight: 76 kg

DRUGS (10)
  1. MOMETASONE FUROATE [Concomitant]
     Dosage: UNK
     Dates: start: 20110619
  2. TIMODINE [Concomitant]
     Dosage: UNK
     Dates: start: 20110622
  3. AMOXICILLIN [Concomitant]
     Dosage: UNK
     Dates: start: 20110620
  4. DOUBLEBASE [Concomitant]
     Dosage: UNK
     Dates: start: 20110330, end: 20110513
  5. DOXYCYCLINE [Suspect]
     Dates: start: 20110619
  6. BECLOMETHASONE DIPROPIONATE [Concomitant]
     Dosage: UNK
     Dates: start: 20110619, end: 20110619
  7. BUDESONIDE [Concomitant]
     Dosage: UNK
     Dates: start: 20110222, end: 20110513
  8. FORMOTEROL FUMARATE [Concomitant]
     Dosage: UNK
     Dates: start: 20110222, end: 20110513
  9. TERBUTALINE [Concomitant]
     Dosage: UNK
     Dates: start: 20110222, end: 20110322
  10. FLOXACILLIN SODIUM [Concomitant]
     Dosage: UNK
     Dates: start: 20110515, end: 20110522

REACTIONS (1)
  - BALANITIS [None]
